FAERS Safety Report 9928246 (Version 1)
Quarter: 2014Q1

REPORT INFORMATION
  Report Type: Spontaneous
  Country: US (occurrence: US)
  Receive Date: 20140227
  Receipt Date: 20140227
  Transmission Date: 20141002
  Serious: Yes (Other)
  Sender: FDA-Public Use
  Company Number: US-JNJFOC-20140211601

PATIENT
  Age: 57 Year
  Sex: Female
  Weight: 94.35 kg

DRUGS (2)
  1. STELARA [Suspect]
     Indication: PSORIASIS
     Route: 058
     Dates: start: 20140109
  2. STELARA [Suspect]
     Indication: PSORIASIS
     Route: 058

REACTIONS (5)
  - Chest pain [Unknown]
  - Pain in extremity [Unknown]
  - Drug ineffective [Unknown]
  - Inappropriate schedule of drug administration [Unknown]
  - Incorrect dose administered [Unknown]
